FAERS Safety Report 6110032-3 (Version None)
Quarter: 2009Q1

REPORT INFORMATION
  Report Type: 
  Country: None (occurrence: None)
  Receive Date: 20090310
  Receipt Date: 20081211
  Transmission Date: 20090719
  Serious: No
  Sender: FDA-Public Use
  Company Number: A0759965A

PATIENT
  Age: 65 Year
  Sex: Female

DRUGS (2)
  1. NICORETTE [Suspect]
     Dates: start: 20081110, end: 20081119
  2. NICOTINE [Suspect]
     Dates: start: 20081110, end: 20081119

REACTIONS (3)
  - COMPULSIVE LIP BITING [None]
  - HYPERSOMNIA [None]
  - NICOTINE DEPENDENCE [None]
